FAERS Safety Report 20015794 (Version 1)
Quarter: 2021Q4

REPORT INFORMATION
  Report Type: Spontaneous
  Country: US (occurrence: None)
  Receive Date: 20211101
  Receipt Date: 20211101
  Transmission Date: 20220303
  Serious: No
  Sender: FDA-Public Use
  Company Number: None

PATIENT
  Age: 72 Year
  Sex: Female

DRUGS (1)
  1. IMATINIB MESYLATE [Suspect]
     Active Substance: IMATINIB MESYLATE
     Indication: Chronic myeloid leukaemia
     Dosage: TAKE 300 MG (3 TABLETS) BY MOUTH FOLLOWED BY 200 MG (2 TABLETS) THE NEXT DAY AS DIRECTED BY YOUR PHY
     Route: 048
     Dates: start: 20180120

REACTIONS (1)
  - Surgery [None]

NARRATIVE: CASE EVENT DATE: 20211024
